FAERS Safety Report 4733554-6 (Version None)
Quarter: 2005Q3

REPORT INFORMATION
  Report Type: 
  Country: None (occurrence: None)
  Receive Date: 20050803
  Receipt Date: 20050519
  Transmission Date: 20060218
  Serious: Yes (Hospitalization)
  Sender: FDA-Public Use
  Company Number: PHEH2005US05686

PATIENT
  Age: 59 Year
  Sex: Female
  Weight: 102 kg

DRUGS (15)
  1. DIOVAN [Suspect]
     Indication: HYPERTENSION
     Dosage: 160 MG, QD
     Route: 048
     Dates: start: 20050425, end: 20050515
  2. DIOVAN [Suspect]
     Dosage: 80 MG, QD
     Dates: start: 20050501
  3. DYAZIDE [Concomitant]
     Indication: HYPERTENSION
     Dosage: 37.5/25 MG DAILY
  4. DYAZIDE [Concomitant]
     Dosage: ALTERNATE 1 DF QD WITH 2 DF QD
  5. DYAZIDE [Concomitant]
     Dosage: 1 DF QD
  6. ASPIRINE, BABY [Concomitant]
  7. LIPITOR /NET/ [Concomitant]
     Indication: HYPERCHOLESTEROLAEMIA
  8. ZANTAC [Concomitant]
     Indication: GASTRIC DISORDER
     Dosage: 150 MG, BID
  9. XANAX [Concomitant]
     Dosage: 1 MG, TID
  10. AYGESTIN [Concomitant]
  11. CLIMARA [Concomitant]
  12. CLARITIN [Concomitant]
     Dosage: UNK, UNK
  13. TOPROL-XL [Concomitant]
     Dosage: 25 MG, BID
  14. TOPROL-XL [Concomitant]
     Dosage: 25 MG, QD
  15. POTASSIUM CHLORIDE [Concomitant]
     Dosage: 20 MEQ

REACTIONS (16)
  - BLOOD PRESSURE DECREASED [None]
  - CHEST PAIN [None]
  - CHRONIC OBSTRUCTIVE PULMONARY DISEASE [None]
  - CORONARY ANGIOPLASTY [None]
  - CORONARY ARTERY DISEASE [None]
  - COUGH [None]
  - DYSPNOEA [None]
  - FATIGUE [None]
  - HEADACHE [None]
  - HIGH DENSITY LIPOPROTEIN DECREASED [None]
  - HYPERHIDROSIS [None]
  - LETHARGY [None]
  - OEDEMA PERIPHERAL [None]
  - STENT PLACEMENT [None]
  - WEIGHT INCREASED [None]
  - WHEEZING [None]
